FAERS Safety Report 7366339-5 (Version None)
Quarter: 2011Q1

REPORT INFORMATION
  Report Type: 
  Country: None (occurrence: None)
  Receive Date: 20110317
  Receipt Date: 20110317
  Transmission Date: 20110831
  Serious: Yes (Hospitalization, Other)
  Sender: FDA-Public Use
  Company Number: None

PATIENT
  Sex: Female

DRUGS (2)
  1. NEUTROGENA DEEP CLEAN FACIAL CLEANSER TOPICAL 3 DAYS [Suspect]
     Indication: THERAPEUTIC SKIN CARE TOPICAL
     Dosage: TOPICAL
  2. NEUTROGENA DEEP CLEAN INVIG FOAM SCRUB [Suspect]
     Indication: THERAPEUTIC SKIN CARE TOPICAL
     Dosage: TOPICAL

REACTIONS (1)
  - DRUG HYPERSENSITIVITY [None]
